FAERS Safety Report 11795261 (Version 1)
Quarter: 2015Q4

REPORT INFORMATION
  Report Type: Spontaneous
  Country: GB (occurrence: GB)
  Receive Date: 20151117
  Receipt Date: 20151117
  Transmission Date: 20160305
  Serious: Yes (Hospitalization, Other)
  Sender: FDA-Public Use
  Company Number: GB-JNJFOC-20151111129

PATIENT
  Age: 22 Year
  Sex: Male
  Weight: 62 kg

DRUGS (3)
  1. REMICADE [Suspect]
     Active Substance: INFLIXIMAB
     Indication: CROHN^S DISEASE
     Dosage: DOSE: 5 (UNITS UNSPECIFIED)
     Route: 042
  2. AZATHIOPRINE. [Concomitant]
     Active Substance: AZATHIOPRINE
     Route: 065
  3. ASACOL [Concomitant]
     Active Substance: MESALAMINE
     Route: 065

REACTIONS (4)
  - Body temperature increased [Recovering/Resolving]
  - Chills [Recovering/Resolving]
  - Hypotension [Recovering/Resolving]
  - Circulatory collapse [Recovering/Resolving]
